FAERS Safety Report 6240202-5 (Version None)
Quarter: 2009Q2

REPORT INFORMATION
  Report Type: 
  Country: None (occurrence: None)
  Receive Date: 20090623
  Receipt Date: 20090113
  Transmission Date: 20091009
  Serious: No
  Sender: FDA-Public Use
  Company Number: US-ASTRAZENECA-2008UW01930

PATIENT
  Age: 68 Year
  Sex: Male
  Weight: 117.9 kg

DRUGS (7)
  1. PULMICORT FLEXHALER [Suspect]
     Indication: CHRONIC OBSTRUCTIVE PULMONARY DISEASE
     Route: 055
  2. PULMICORT FLEXHALER [Suspect]
     Indication: ASTHMA
     Route: 055
  3. ALBUTEROL [Concomitant]
  4. IPRATROPIUM BROMIDE [Concomitant]
  5. SINGULAIR [Concomitant]
  6. PREDNISONE TAB [Concomitant]
  7. ANTIHYPERTENSIVE [Concomitant]
     Indication: BLOOD PRESSURE

REACTIONS (2)
  - DRUG INEFFECTIVE [None]
  - DYSPNOEA [None]
